FAERS Safety Report 4381285-7 (Version None)
Quarter: 2004Q2

REPORT INFORMATION
  Report Type: 
  Country: None (occurrence: None)
  Receive Date: 20040614
  Receipt Date: 20040604
  Transmission Date: 20050107
  Serious: Yes (Other)
  Sender: FDA-Public Use
  Company Number: 200412368BWH

PATIENT
  Age: 53 Year
  Sex: Male
  Weight: 92.9874 kg

DRUGS (14)
  1. LEVITRA [Suspect]
     Indication: DISTURBANCE IN SEXUAL AROUSAL
     Dosage: SEE IMAGE
     Route: 048
     Dates: start: 20040210
  2. LEVITRA [Suspect]
     Indication: ERECTILE DYSFUNCTION
     Dosage: SEE IMAGE
     Route: 048
     Dates: start: 20040210
  3. LEVITRA [Suspect]
     Indication: DISTURBANCE IN SEXUAL AROUSAL
     Dosage: SEE IMAGE
     Route: 048
     Dates: start: 20040301
  4. LEVITRA [Suspect]
     Indication: ERECTILE DYSFUNCTION
     Dosage: SEE IMAGE
     Route: 048
     Dates: start: 20040301
  5. LEVITRA [Suspect]
     Indication: DISTURBANCE IN SEXUAL AROUSAL
     Dosage: SEE IMAGE
     Route: 048
     Dates: start: 20040302
  6. LEVITRA [Suspect]
     Indication: ERECTILE DYSFUNCTION
     Dosage: SEE IMAGE
     Route: 048
     Dates: start: 20040302
  7. LEVITRA [Suspect]
     Indication: DISTURBANCE IN SEXUAL AROUSAL
     Dosage: SEE IMAGE
     Route: 048
     Dates: start: 20040308
  8. LEVITRA [Suspect]
     Indication: ERECTILE DYSFUNCTION
     Dosage: SEE IMAGE
     Route: 048
     Dates: start: 20040308
  9. LEVITRA [Suspect]
     Indication: DISTURBANCE IN SEXUAL AROUSAL
     Dosage: SEE IMAGE
     Route: 048
     Dates: start: 20040426
  10. LEVITRA [Suspect]
     Indication: ERECTILE DYSFUNCTION
     Dosage: SEE IMAGE
     Route: 048
     Dates: start: 20040426
  11. LEVITRA [Suspect]
     Indication: DISTURBANCE IN SEXUAL AROUSAL
     Dosage: SEE IMAGE
     Route: 048
     Dates: start: 20040506
  12. LEVITRA [Suspect]
     Indication: ERECTILE DYSFUNCTION
     Dosage: SEE IMAGE
     Route: 048
     Dates: start: 20040506
  13. LEVITRA [Suspect]
     Indication: DISTURBANCE IN SEXUAL AROUSAL
     Dosage: SEE IMAGE
     Route: 048
     Dates: start: 20040530
  14. LEVITRA [Suspect]
     Indication: ERECTILE DYSFUNCTION
     Dosage: SEE IMAGE
     Route: 048
     Dates: start: 20040530

REACTIONS (2)
  - ERECTION INCREASED [None]
  - HAEMATOSPERMIA [None]
